FAERS Safety Report 10257457 (Version 1)
Quarter: 2014Q2

REPORT INFORMATION
  Report Type: Spontaneous
  Country: CA (occurrence: None)
  Receive Date: 20140620
  Receipt Date: 20140620
  Transmission Date: 20141212
  Serious: Yes (Death, Other)
  Sender: FDA-Public Use
  Company Number: AUR-APL-2014-06470

PATIENT
  Age: 46 Year
  Sex: Female

DRUGS (5)
  1. MIRTAZAPINE [Suspect]
  2. MORPHINE SULFATE (MORPHINE SULFATE) INJECTION [Suspect]
     Indication: PRODUCT USED FOR UNKNOWN INDICATION
  3. CODEINE (CODEINE) [Suspect]
     Indication: PRODUCT USED FOR UNKNOWN INDICATION
  4. AMITRIPTYLINE [Suspect]
     Indication: PRODUCT USED FOR UNKNOWN INDICATION
  5. NORTRIPTYLINE [Suspect]
     Indication: PRODUCT USED FOR UNKNOWN INDICATION

REACTIONS (1)
  - Overdose [None]
